FAERS Safety Report 17950324 (Version 2)
Quarter: 2020Q3

REPORT INFORMATION
  Report Type: Spontaneous
  Country: CO (occurrence: CO)
  Receive Date: 20200626
  Receipt Date: 20200715
  Transmission Date: 20201103
  Serious: Yes (Other)
  Sender: FDA-Public Use
  Company Number: CO-AMGEN-COLSP2020099123

PATIENT
  Age: 55 Year
  Sex: Male
  Weight: 78 kg

DRUGS (3)
  1. FOLFIRI [Concomitant]
     Active Substance: FLUOROURACIL\IRINOTECAN\LEUCOVORIN
     Dosage: UNK
  2. MVASI [Suspect]
     Active Substance: BEVACIZUMAB-AWWB
     Indication: COLON CANCER METASTATIC
     Dosage: 390 MILLIGRAM, Q3WK
     Route: 065
     Dates: start: 20191025
  3. IRINOTECAN [Concomitant]
     Active Substance: IRINOTECAN
     Dosage: UNK

REACTIONS (3)
  - Abdominal wound dehiscence [Not Recovered/Not Resolved]
  - Intestinal obstruction [Unknown]
  - Suture related complication [Not Recovered/Not Resolved]

NARRATIVE: CASE EVENT DATE: 20200610
